FAERS Safety Report 15056432 (Version 1)
Quarter: 2018Q2

REPORT INFORMATION
  Report Type: Report from Study
  Country: None (occurrence: US)
  Receive Date: 20180622
  Receipt Date: 20180622
  Transmission Date: 20180711
  Serious: Yes (Other)
  Sender: FDA-Public Use
  Company Number: US-ABBVIE-18S-163-2393413-00

PATIENT
  Sex: Female

DRUGS (1)
  1. LUPRON [Suspect]
     Active Substance: LEUPROLIDE ACETATE
     Indication: PRODUCT USED FOR UNKNOWN INDICATION
     Route: 050

REACTIONS (6)
  - Female sterilisation [Unknown]
  - Uterine leiomyoma [Unknown]
  - Pelvic pain [Unknown]
  - Back pain [Unknown]
  - Exposure during pregnancy [Unknown]
  - Dysmenorrhoea [Unknown]
